FAERS Safety Report 5212385-7 (Version None)
Quarter: 2006Q4

REPORT INFORMATION
  Report Type: 
  Country: None (occurrence: None)
  Receive Date: 20061130
  Receipt Date: 20060519
  Transmission Date: 20070319
  Serious: Yes (Other)
  Sender: FDA-Public Use
  Company Number: WAES 0605USA04316

PATIENT
  Sex: Male

DRUGS (3)
  1. FOSAMAX [Suspect]
     Dosage: PO
     Route: 048
  2. AREDIA [Suspect]
  3. ZOMETA [Suspect]

REACTIONS (1)
  - OSTEONECROSIS [None]
